FAERS Safety Report 9881902 (Version 1)
Quarter: 2014Q1

REPORT INFORMATION
  Report Type: Spontaneous
  Country: US (occurrence: None)
  Receive Date: 20140205
  Receipt Date: 20140205
  Transmission Date: 20141002
  Serious: Yes (Hospitalization)
  Sender: FDA-Public Use
  Company Number: HA14-022-AE

PATIENT
  Age: 53 Year
  Sex: Female
  Weight: 157.4 kg

DRUGS (20)
  1. NAPROXEN [Suspect]
     Indication: OSTEOARTHRITIS
     Route: 048
     Dates: start: 20080930, end: 20100919
  2. CELECOXIB; IBUPROFEN; PLACEBO [Suspect]
     Dates: start: 20080930, end: 20100929
  3. ORAL AMINO ACIDS [Concomitant]
  4. ORAL IRBESARTAN(AVAPRO) [Concomitant]
  5. PROPRANOLOL(PROPANOLOL) [Concomitant]
  6. ORAL FUROSEMIDE [Concomitant]
  7. ORAL DEXTROPROPOXYPHEN NAPSILATE [Concomitant]
  8. PARACETAMOL(PROPACET) [Concomitant]
  9. MONTELUKAST SODIUM [Concomitant]
  10. SINGULAIR [Concomitant]
  11. FLUTICASONE PROPIONATE(FLOVEN) [Concomitant]
  12. IPRATROPIUM BROMIDE [Concomitant]
  13. SALBUTAMOL SULFATE(COMBIVENT) [Concomitant]
  14. ORAL ZIPRASIDONE HYDROCHLORIDE(GEODON) [Concomitant]
  15. LAMOTRIGINE(LAMICITAL) [Concomitant]
  16. TRAZODONE [Concomitant]
  17. FERROUS SULFATE [Concomitant]
  18. NIFEDIPINE(NIFEDICAL) [Concomitant]
  19. NEXIUM [Concomitant]
  20. METFORMIN [Concomitant]

REACTIONS (8)
  - Thalamic infarction [None]
  - Loss of consciousness [None]
  - Blood creatinine increased [None]
  - Blood magnesium decreased [None]
  - Haematocrit decreased [None]
  - Haemoglobin decreased [None]
  - Red blood cell count decreased [None]
  - Local swelling [None]
